FAERS Safety Report 5632518-8 (Version None)
Quarter: 2008Q1

REPORT INFORMATION
  Report Type: 
  Country: None (occurrence: None)
  Receive Date: 20080131
  Receipt Date: 20071108
  Transmission Date: 20080703
  Serious: No
  Sender: FDA-Public Use
  Company Number: 163-21880-07100591

PATIENT
  Age: 80 Year
  Sex: Female

DRUGS (2)
  1. REVLIMID [Suspect]
     Indication: ANAEMIA
     Dosage: 10 MG, 1 IN 1 D, ORAL
     Route: 048
     Dates: start: 20070920
  2. ASPIRIN [Concomitant]

REACTIONS (6)
  - BACK PAIN [None]
  - BLOOD TEST ABNORMAL [None]
  - CONSTIPATION [None]
  - CONTUSION [None]
  - HEADACHE [None]
  - JOINT SWELLING [None]
